FAERS Safety Report 8496517 (Version 2)
Quarter: 2012Q4

REPORT INFORMATION
  Report Type: 
  Country: US (occurrence: US)
  Receive Date: 20120405
  Receipt Date: 20121019
  Transmission Date: 20130627
  Serious: Yes (Hospitalization)
  Sender: FDA-Public Use
  Company Number: US-BAYER-2012-031584

PATIENT
  Age: 27 Year
  Sex: Female

DRUGS (30)
  1. YAZ [Suspect]
     Indication: ACNE
     Dosage: UNK
     Dates: start: 2007, end: 2007
  2. SYNTHROID [Concomitant]
     Dosage: 125 ?g, UNK
  3. GABAPENTIN [Concomitant]
     Dosage: 300 mg, UNK
  4. CARISOPRODOL [Concomitant]
     Dosage: 350 mg, UNK
  5. VERAPAMIL [Concomitant]
     Dosage: 240 mg, UNK
  6. HYDROCHLOROTHIAZID [Concomitant]
     Dosage: 12.5 m
  7. AMBIEN [Concomitant]
     Dosage: 10 mg
  8. AMBIEN [Concomitant]
     Dosage: 12.5 mg
  9. ALPRAZOLAM [Concomitant]
     Dosage: 0.5 mg
  10. ALPRAZOLAM [Concomitant]
     Dosage: 1 mg
  11. LITHIUM CARBONATE [Concomitant]
     Dosage: 300 mg, UNK
  12. LEVOTHYROXINE [Concomitant]
     Dosage: 150 mcg
  13. CIPROFLOXACIN [Concomitant]
     Dosage: 500 mg, UNK
  14. CYMBALTA [Concomitant]
     Dosage: 30 mg, UNK
  15. POTASSIUM CHLORIDE [Concomitant]
     Dosage: 10 mEq, UNK
  16. LEXAPRO [Concomitant]
     Dosage: 10 mg, UNK
  17. ZYRTEC [Concomitant]
     Dosage: 10 mg, UNK
  18. AMOXICILLIN [Concomitant]
     Dosage: 500 mg, UNK
  19. RISPERDAL [Concomitant]
     Dosage: 2 mg, UNK
  20. ZOLPIDEM [Concomitant]
     Dosage: 10 mg, UNK
  21. BUDEPRION XL [Concomitant]
     Dosage: 300 mg, UNK
  22. CYCLOBENZAPRINE [Concomitant]
     Dosage: 10 mg, UNK
  23. PRILOSEC [Concomitant]
  24. VICODIN [Concomitant]
     Indication: CHEST PAIN
  25. ASPIRIN [Concomitant]
  26. PLAVIX [Concomitant]
  27. VYTORIN [Concomitant]
  28. TRICOR [Concomitant]
  29. FISH OIL [Concomitant]
  30. HYDROCODONE W/ACETAMINOPHEN [Concomitant]

REACTIONS (3)
  - Acute myocardial infarction [None]
  - Injury [None]
  - Pain [None]
